FAERS Safety Report 5759288-7 (Version None)
Quarter: 2008Q2

REPORT INFORMATION
  Report Type: 
  Country: None (occurrence: None)
  Receive Date: 20080604
  Receipt Date: 20080514
  Transmission Date: 20081010
  Serious: Yes (Hospitalization)
  Sender: FDA-Public Use
  Company Number: US-WATSON-2008-03088

PATIENT
  Sex: Male

DRUGS (11)
  1. FENTANYL-50 (WATSON LABORATORIES) [Suspect]
     Indication: ABDOMINAL PAIN
     Dosage: 1 PATCH, Q3DAYS
     Route: 062
     Dates: start: 20080428, end: 20080429
  2. PROPOXYPHENE HCL AND ACETAMINOPHEN (QUALITEST) [Concomitant]
     Indication: PAIN
     Dosage: 1 TABLET, Q4H, PRN
     Route: 048
     Dates: start: 20080510
  3. PROPOXYPHENE HCL AND ACETAMINOPHEN (QUALITEST) [Concomitant]
     Dosage: 1 TABLET, PRN, Q4H (100/650)
     Route: 048
     Dates: start: 20080318, end: 20080427
  4. AMBIEN [Concomitant]
     Indication: DRUG USE FOR UNKNOWN INDICATION
     Dosage: 1 TABLET, QHS, PRN
     Route: 048
     Dates: start: 20070801
  5. LORAZEPAM [Concomitant]
     Indication: DRUG USE FOR UNKNOWN INDICATION
     Dosage: 1 TABLET, TID, PRM
     Route: 048
     Dates: start: 20080428
  6. HYDROCODONE BITARTRATE + ACETAMINOPHEN [Concomitant]
     Indication: DRUG USE FOR UNKNOWN INDICATION
     Dosage: 0.5-1 TABLET, QID, PRN
     Route: 048
     Dates: start: 20080416
  7. COREG [Concomitant]
     Indication: DRUG USE FOR UNKNOWN INDICATION
     Dosage: 1 TABLET, BID
     Route: 048
     Dates: start: 20071101
  8. LASIX [Concomitant]
     Indication: DRUG USE FOR UNKNOWN INDICATION
     Dosage: 60 MG, QAM
     Route: 048
     Dates: start: 20070919
  9. ZOLOFT [Concomitant]
     Indication: DRUG USE FOR UNKNOWN INDICATION
     Dosage: 25 MG, DAILY
     Route: 048
     Dates: start: 20080108
  10. IMDUR [Concomitant]
     Indication: DRUG USE FOR UNKNOWN INDICATION
     Dosage: 1 TABLET, DAILY
     Route: 048
     Dates: start: 20080108
  11. PRILOSEC [Concomitant]
     Indication: DRUG USE FOR UNKNOWN INDICATION
     Dosage: 40 MG, DAILY
     Route: 048
     Dates: start: 20071019

REACTIONS (10)
  - ABDOMINAL PAIN [None]
  - BLOOD POTASSIUM INCREASED [None]
  - CONFUSIONAL STATE [None]
  - DEHYDRATION [None]
  - DRUG TOXICITY [None]
  - LETHARGY [None]
  - OVERDOSE [None]
  - PNEUMONIA [None]
  - RENAL FAILURE [None]
  - SOMNOLENCE [None]
